FAERS Safety Report 25975541 (Version 2)
Quarter: 2025Q4

REPORT INFORMATION
  Report Type: Report from Study
  Country: KR (occurrence: KR)
  Receive Date: 20251029
  Receipt Date: 20251106
  Transmission Date: 20260118
  Serious: Yes (Hospitalization)
  Sender: GLAXOSMITHKLINE
  Company Number: KR-GSK-KR2025GSK138977

PATIENT
  Age: 57 Year
  Sex: Female
  Weight: 41.2 kg

DRUGS (2)
  1. MOMELOTINIB [Suspect]
     Active Substance: MOMELOTINIB
     Indication: Haematological neoplasm
     Dosage: UNK
  2. MOMELOTINIB [Suspect]
     Active Substance: MOMELOTINIB
     Dosage: 150 MG

REACTIONS (1)
  - Herpes zoster [Recovered/Resolved]

NARRATIVE: CASE EVENT DATE: 20251016
